FAERS Safety Report 7220530-7 (Version None)
Quarter: 2011Q1

REPORT INFORMATION
  Report Type: 
  Country: None (occurrence: None)
  Receive Date: 20110111
  Receipt Date: 20110105
  Transmission Date: 20110831
  Serious: Yes (Hospitalization, Disabling, Other)
  Sender: FDA-Public Use
  Company Number: JP-ABBOTT-11P-087-0695470-00

PATIENT
  Sex: Male

DRUGS (12)
  1. PREZISTA [Suspect]
     Indication: HIV INFECTION
     Dosage: 1200 MG DAILY
     Route: 048
     Dates: start: 20081028
  2. LOPERAMIDE HYDROCHLORIDE [Concomitant]
     Indication: DIARRHOEA
     Route: 048
     Dates: start: 20070319
  3. RITONAVIR [Suspect]
     Indication: HIV INFECTION
     Dosage: 200 MG DAILY
     Route: 048
     Dates: start: 20081028
  4. CLONAZEPAM [Concomitant]
     Indication: EPILEPSY
     Route: 048
     Dates: start: 20080805
  5. ANTIBIOTICS-RESISTANT LACTIC ACID BACTERIAE [Concomitant]
     Indication: DIARRHOEA
     Route: 048
     Dates: start: 20081201, end: 20091221
  6. VIREAD [Suspect]
     Indication: HIV INFECTION
     Dosage: 300 MG DAILY
     Route: 048
     Dates: start: 20021125
  7. BROMOVALERYLUREA [Concomitant]
     Indication: INSOMNIA
     Route: 048
     Dates: start: 20040412
  8. PRIMIDONE [Concomitant]
     Indication: EPILEPSY
     Route: 048
     Dates: start: 20060617
  9. ITOPRIDE HYDROCHLORIDE [Concomitant]
     Indication: DIARRHOEA
     Route: 048
     Dates: start: 20090120
  10. VALPROATE SODIUM [Concomitant]
     Indication: EPILEPSY
     Route: 048
     Dates: start: 20090729
  11. ASPIRIN/DIALUMINATE [Concomitant]
     Indication: CEREBRAL INFARCTION
     Route: 048
     Dates: start: 20020401
  12. BETAHISTINE MESILATE [Concomitant]
     Indication: DIZZINESS
     Route: 048
     Dates: start: 20081006

REACTIONS (4)
  - GAIT DISTURBANCE [None]
  - OSTEONECROSIS [None]
  - FALL [None]
  - PAIN IN EXTREMITY [None]
